FAERS Safety Report 7064824-7 (Version None)
Quarter: 2010Q4

REPORT INFORMATION
  Report Type: 
  Country: None (occurrence: None)
  Receive Date: 20101022
  Receipt Date: 20101022
  Transmission Date: 20110411
  Serious: Yes (Congenital Anomaly)
  Sender: FDA-Public Use
  Company Number: None

PATIENT
  Age: 29 Year
  Sex: Female
  Weight: 95.2554 kg

DRUGS (2)
  1. CYMBALTA [Suspect]
     Indication: ANXIETY
     Dosage: 30 MG. ONCE A DAY PO
     Route: 048
     Dates: start: 20020106, end: 20101003
  2. CYMBALTA [Suspect]
     Indication: PANIC DISORDER
     Dosage: 30 MG. ONCE A DAY PO
     Route: 048
     Dates: start: 20020106, end: 20101003

REACTIONS (3)
  - DIZZINESS [None]
  - DRUG DEPENDENCE [None]
  - PARAESTHESIA [None]
